FAERS Safety Report 6432284-2 (Version None)
Quarter: 2009Q4

REPORT INFORMATION
  Report Type: 
  Country: None (occurrence: None)
  Receive Date: 20091105
  Receipt Date: 20091027
  Transmission Date: 20100525
  Serious: Yes (Hospitalization, Disabling)
  Sender: FDA-Public Use
  Company Number: 232426J09USA

PATIENT
  Age: 23 Year
  Sex: Female

DRUGS (1)
  1. REBIF [Suspect]
     Indication: MULTIPLE SCLEROSIS
     Dosage: 22 MCG, 3 IN 1 WEEKS, SUBCUTANEOUS
     Route: 058
     Dates: start: 20090917, end: 20091011

REACTIONS (8)
  - ASTHENIA [None]
  - CENTRAL NERVOUS SYSTEM LESION [None]
  - DEAFNESS UNILATERAL [None]
  - DYSPHAGIA [None]
  - EATING DISORDER [None]
  - SPUTUM INCREASED [None]
  - THROAT TIGHTNESS [None]
  - URINARY TRACT INFECTION [None]
